FAERS Safety Report 16772640 (Version 37)
Quarter: 2023Q4

REPORT INFORMATION
  Report Type: Spontaneous
  Country: US (occurrence: US)
  Receive Date: 20190904
  Receipt Date: 20231113
  Transmission Date: 20240110
  Serious: Yes (Hospitalization, Other)
  Sender: FDA-Public Use
  Company Number: US-PFIZER INC-2019379024

PATIENT
  Age: 22 Year
  Sex: Female
  Weight: 50.794 kg

DRUGS (5)
  1. PREMARIN [Suspect]
     Active Substance: ESTROGENS, CONJUGATED
     Indication: Hormone replacement therapy
     Dosage: 3.75 MG, 1X/DAY (THREE TABLETS ONCE DAILY)
     Route: 048
     Dates: start: 1971
  2. PREMARIN [Suspect]
     Active Substance: ESTROGENS, CONJUGATED
     Indication: Albright^s disease
     Dosage: THREE TABLETS ONCE AT NIGHT
     Route: 048
  3. PREMARIN [Suspect]
     Active Substance: ESTROGENS, CONJUGATED
     Indication: Bone disorder
     Dosage: DAILY OF 1.25 FOR A TOTAL OF 3.75 DAILY
  4. PREMARIN [Suspect]
     Active Substance: ESTROGENS, CONJUGATED
     Indication: Postmenopause
     Dosage: TAKE THREE TABLETS (3.75 MG TOTAL) DAILY
     Route: 048
  5. AMLODIPINE [Concomitant]
     Active Substance: AMLODIPINE BESYLATE
     Dosage: 2.5 MG
     Dates: start: 2015

REACTIONS (28)
  - Candida infection [Not Recovered/Not Resolved]
  - Uterine cancer [Recovered/Resolved]
  - Malignant melanoma [Recovered/Resolved]
  - Neoplasm malignant [Recovered/Resolved]
  - Feeling abnormal [Not Recovered/Not Resolved]
  - Joint dislocation [Unknown]
  - Tourette^s disorder [Unknown]
  - Head injury [Unknown]
  - Neck injury [Recovered/Resolved]
  - Colon cancer [Unknown]
  - Hypertension [Unknown]
  - Panic disorder [Unknown]
  - Asthenia [Unknown]
  - Illness [Unknown]
  - Vaginal discharge [Unknown]
  - Tooth loss [Unknown]
  - Oral candidiasis [Unknown]
  - Fungal infection [Unknown]
  - Crying [Unknown]
  - Mental disorder [Unknown]
  - Screaming [Unknown]
  - Asthma [Unknown]
  - Panic attack [Unknown]
  - Cognitive disorder [Unknown]
  - Migraine [Unknown]
  - Lack of spontaneous speech [Unknown]
  - Emotional disorder [Unknown]
  - Off label use [Unknown]

NARRATIVE: CASE EVENT DATE: 19710101
